FAERS Safety Report 4432948-6 (Version None)
Quarter: 2004Q3

REPORT INFORMATION
  Report Type: 
  Country: None (occurrence: None)
  Receive Date: 20040823
  Receipt Date: 20040802
  Transmission Date: 20050211
  Serious: Yes (Hospitalization, Other)
  Sender: FDA-Public Use
  Company Number: JP_040804049

PATIENT
  Age: 59 Year
  Sex: Male
  Weight: 59 kg

DRUGS (4)
  1. GEMZAR [Suspect]
     Indication: BLADDER CANCER
     Dosage: 1600 MG OTHER
     Dates: start: 20030507, end: 20040225
  2. CISPLATIN [Concomitant]
  3. PACLITAXEL [Concomitant]
  4. DECADRON [Concomitant]

REACTIONS (12)
  - ABDOMINAL DISTENSION [None]
  - BILIARY TRACT DISORDER [None]
  - BLOOD PRESSURE DECREASED [None]
  - DISORIENTATION [None]
  - GALLBLADDER ENLARGEMENT [None]
  - HEPATIC FUNCTION ABNORMAL [None]
  - LIVER DISORDER [None]
  - LYMPHADENOPATHY [None]
  - METASTASES TO LYMPH NODES [None]
  - PYREXIA [None]
  - TIC [None]
  - WHITE BLOOD CELL COUNT DECREASED [None]
